FAERS Safety Report 6541578-1 (Version None)
Quarter: 2010Q1

REPORT INFORMATION
  Report Type: 
  Country: None (occurrence: None)
  Receive Date: 20100119
  Receipt Date: 20100112
  Transmission Date: 20100710
  Serious: No
  Sender: FDA-Public Use
  Company Number: GB-ROCHE-679413

PATIENT
  Age: 3 Year
  Sex: Female

DRUGS (1)
  1. TAMIFLU [Suspect]
     Indication: DRUG USE FOR UNKNOWN INDICATION
     Dosage: 30MG PRESCRIBED
     Route: 065

REACTIONS (2)
  - INCORRECT DOSE ADMINISTERED [None]
  - NO ADVERSE EVENT [None]
